FAERS Safety Report 8967309 (Version 1)
Quarter: 2012Q4

REPORT INFORMATION
  Report Type: 
  Country: US (occurrence: US)
  Receive Date: 20121217
  Receipt Date: 20121217
  Transmission Date: 20130627
  Serious: Yes (Other)
  Sender: FDA-Public Use
  Company Number: US-ELI_LILLY_AND_COMPANY-US201212000757

PATIENT
  Age: 43 Year
  Sex: Female

DRUGS (5)
  1. HUMULIN REGULAR [Suspect]
     Indication: TYPE 2 DIABETES MELLITUS
     Dosage: 35 u, tid
  2. HUMULIN REGULAR [Suspect]
     Dosage: 35 u, tid
     Dates: end: 20121128
  3. METFORMIN [Concomitant]
     Dosage: 1000 mg, bid
  4. LEVEMIR [Concomitant]
     Dosage: 70 u, bid
  5. JANUMET [Concomitant]
     Dosage: 2 DF, qd

REACTIONS (1)
  - Blindness [Unknown]
